FAERS Safety Report 6242399-X (Version None)
Quarter: 2009Q2

REPORT INFORMATION
  Report Type: 
  Country: None (occurrence: None)
  Receive Date: 20090622
  Receipt Date: 20090622
  Transmission Date: 20091009
  Serious: Yes (Life-Threatening, Hospitalization, Other)
  Sender: FDA-Public Use
  Company Number: None

PATIENT
  Sex: Female
  Weight: 100.6985 kg

DRUGS (1)
  1. STRATTERA [Suspect]
     Indication: ATTENTION DEFICIT/HYPERACTIVITY DISORDER
     Dosage: 60MG QD PO
     Route: 048
     Dates: start: 20090301, end: 20090604

REACTIONS (5)
  - HEPATITIS [None]
  - MALAISE [None]
  - NAUSEA [None]
  - PAIN [None]
  - URTICARIA [None]
